FAERS Safety Report 19802754 (Version 1)
Quarter: 2021Q3

REPORT INFORMATION
  Report Type: Spontaneous
  Country: CN (occurrence: CN)
  Receive Date: 20210908
  Receipt Date: 20210908
  Transmission Date: 20211014
  Serious: Yes (Other)
  Sender: FDA-Public Use
  Company Number: NVSC2021CN200769

PATIENT
  Age: 56 Year
  Sex: Female
  Weight: 50.5 kg

DRUGS (1)
  1. REVOLADE [Suspect]
     Active Substance: ELTROMBOPAG OLAMINE
     Indication: CONNECTIVE TISSUE DISORDER
     Dosage: 50 MG, QD
     Route: 065
     Dates: start: 20210720, end: 20210806

REACTIONS (1)
  - Thrombosis [Unknown]

NARRATIVE: CASE EVENT DATE: 20210809
